FAERS Safety Report 9758319 (Version 1)
Quarter: 2013Q4

REPORT INFORMATION
  Report Type: Spontaneous
  Country: US (occurrence: None)
  Receive Date: 20131213
  Receipt Date: 20131213
  Transmission Date: 20140711
  Serious: Yes (Other)
  Sender: FDA-Public Use
  Company Number: None

PATIENT
  Age: 64 Year
  Sex: Male
  Weight: 60.3 kg

DRUGS (1)
  1. RIXUBIS [Suspect]
     Indication: HAEMORRHAGE PROPHYLAXIS
     Route: 042
     Dates: start: 20131207, end: 20131211

REACTIONS (3)
  - Hyperhidrosis [None]
  - Infusion site erythema [None]
  - Infusion site rash [None]
